FAERS Safety Report 11156405 (Version 1)
Quarter: 2015Q2

REPORT INFORMATION
  Report Type: Spontaneous
  Country: US (occurrence: None)
  Receive Date: 20150601
  Receipt Date: 20150601
  Transmission Date: 20150821
  Serious: Yes (Other)
  Sender: FDA-Public Use
  Company Number: None

PATIENT
  Age: 62 Year
  Sex: Female
  Weight: 105.24 kg

DRUGS (11)
  1. CARVEDILOL. [Suspect]
     Active Substance: CARVEDILOL
     Indication: HYPERTENSION
     Dosage: TAKEN BY MOUTH
     Dates: start: 20150522, end: 20150529
  2. LISINOPRIL. [Concomitant]
     Active Substance: LISINOPRIL
  3. COQ10 [Concomitant]
     Active Substance: UBIDECARENONE
  4. METHOTREXATE [Concomitant]
     Active Substance: METHOTREXATE
  5. ZETIA [Concomitant]
     Active Substance: EZETIMIBE
  6. FOLIC ACID. [Concomitant]
     Active Substance: FOLIC ACID
  7. GLIPIZIDE. [Concomitant]
     Active Substance: GLIPIZIDE
  8. REMICADE [Concomitant]
     Active Substance: INFLIXIMAB
  9. RED YEASTY RICE [Concomitant]
  10. OMEPRAZOLE. [Concomitant]
     Active Substance: OMEPRAZOLE
  11. OMEGA 3 [Concomitant]
     Active Substance: OMEGA-3 FATTY ACIDS

REACTIONS (1)
  - Mouth haemorrhage [None]

NARRATIVE: CASE EVENT DATE: 20150529
